FAERS Safety Report 8141853-3 (Version None)
Quarter: 2012Q1

REPORT INFORMATION
  Report Type: 
  Country: None (occurrence: None)
  Receive Date: 20120216
  Receipt Date: 20120206
  Transmission Date: 20120608
  Serious: Yes (Hospitalization, Other)
  Sender: FDA-Public Use
  Company Number: US-SANOFI-AVENTIS-2012SA007964

PATIENT
  Age: 62 Year
  Sex: Female
  Weight: 58.96 kg

DRUGS (14)
  1. CALCIUM MVI [Concomitant]
  2. CRESTOR [Concomitant]
  3. PLAVIX [Suspect]
     Dates: start: 20101101
  4. ASPIRIN [Suspect]
  5. PLAVIX [Suspect]
     Dates: start: 20110101
  6. ASPIRIN [Suspect]
  7. LOPRESSOR [Concomitant]
  8. PLAVIX [Suspect]
     Indication: STENT PLACEMENT
     Dates: start: 20101101
  9. PLAVIX [Suspect]
     Dates: end: 20110101
  10. PLAVIX [Suspect]
     Dates: start: 20110101
  11. ASPIRIN [Suspect]
     Indication: STENT PLACEMENT
     Dates: start: 20101101
  12. PLAVIX [Suspect]
     Dates: end: 20110101
  13. ASPIRIN [Suspect]
     Dates: start: 20101101
  14. AMLODIPINE [Concomitant]

REACTIONS (8)
  - CORONARY ARTERY OCCLUSION [None]
  - MOUTH HAEMORRHAGE [None]
  - EPISTAXIS [None]
  - MALAISE [None]
  - THROMBOSIS [None]
  - NASOPHARYNGITIS [None]
  - ANGINA PECTORIS [None]
  - DYSPEPSIA [None]
